FAERS Safety Report 13644115 (Version 1)
Quarter: 2017Q2

REPORT INFORMATION
  Report Type: Spontaneous
  Country: CH (occurrence: CH)
  Receive Date: 20170612
  Receipt Date: 20170612
  Transmission Date: 20170830
  Serious: Yes (Hospitalization)
  Sender: FDA-Public Use
  Company Number: CH-MEDA-2017060015

PATIENT
  Age: 66 Year
  Sex: Female

DRUGS (27)
  1. CONCOR 2.5 MG [Concomitant]
     Route: 048
  2. NEXIUM-MUPS [Concomitant]
     Indication: CRYSTAL ARTHROPATHY
     Route: 048
  3. PYRALVEX [Concomitant]
     Route: 002
  4. IPRAMOL STERI NEBS [Concomitant]
  5. SPIOLTO RESPIMAT [Concomitant]
     Active Substance: OLODATEROL HYDROCHLORIDE\TIOTROPIUM BROMIDE MONOHYDRATE
  6. ASPIRIN CARDIO 100 MG [Concomitant]
     Active Substance: ASPIRIN
     Route: 048
  7. ATORVASTATIN PFIZER 80 MG [Concomitant]
     Route: 048
  8. ESTROFEM N [Concomitant]
     Active Substance: ESTRADIOL
     Route: 048
  9. FLUIMUCIL [Concomitant]
     Active Substance: ACETYLCYSTEINE
     Route: 048
  10. EZETROL [Concomitant]
     Active Substance: EZETIMIBE
     Route: 048
  11. RESYL PLUS [Concomitant]
     Active Substance: CODEINE PHOSPHATE\GUAIFENESIN
     Dosage: 20-20-20-0
     Route: 048
  12. LYRICA [Concomitant]
     Active Substance: PREGABALIN
     Route: 048
  13. VI D3 [Concomitant]
     Dosage: 10-0-0-0
     Route: 048
  14. METOJECT 15 MG/0.3 ML [Concomitant]
     Indication: ARTHRITIS
     Route: 058
  15. LODOTRA [Concomitant]
     Active Substance: PREDNISONE
     Indication: ARTHRITIS
  16. COLCHICINE OPOCALIUM (IMP F) [Concomitant]
     Dosage: 1/2-0-0-0
     Route: 048
  17. TRITTICO [Concomitant]
     Active Substance: TRAZODONE HYDROCHLORIDE
     Route: 048
  18. BACTRIM FORTE 800 MG/160 MG [Concomitant]
     Indication: CHRONIC OBSTRUCTIVE PULMONARY DISEASE
     Dosage: 1 DF THREE TIMES IN WEEK (MONDAY, WEDNESDAY AND FRIDAY)
     Route: 048
  19. ACIDUM FOLICUM STREULI [Concomitant]
     Active Substance: FOLIC ACID
     Route: 048
  20. ELTROXIN LF [Concomitant]
     Route: 048
  21. KCL HAUSMANN [Concomitant]
     Route: 048
  22. MAGNESIUM DIASPORAL [Concomitant]
     Active Substance: MAGNESIUM
     Route: 048
  23. TOREM 10 MG [Suspect]
     Active Substance: TORSEMIDE
     Route: 048
  24. TOREM 10 MG [Suspect]
     Active Substance: TORSEMIDE
     Route: 048
     Dates: start: 2017
  25. DOSPIR 1 MG/0.2 MG [Concomitant]
  26. CYMBALTA [Concomitant]
     Active Substance: DULOXETINE HYDROCHLORIDE
     Route: 048
  27. TRIATEC COMP. MITE 2.5 MG/12.5 MG [Suspect]
     Active Substance: HYDROCHLOROTHIAZIDE\RAMIPRIL
     Route: 048

REACTIONS (3)
  - Hypokalaemia [Recovered/Resolved]
  - Dyspnoea [None]
  - Acute kidney injury [Recovered/Resolved]

NARRATIVE: CASE EVENT DATE: 20170131
